FAERS Safety Report 7820040-X (Version None)
Quarter: 2011Q4

REPORT INFORMATION
  Report Type: 
  Country: None (occurrence: None)
  Receive Date: 20111018
  Receipt Date: 20111005
  Transmission Date: 20120403
  Serious: Yes (Other)
  Sender: FDA-Public Use
  Company Number: PHHY2011BR88773

PATIENT
  Sex: Male
  Weight: 78 kg

DRUGS (4)
  1. FORMOTEROL FUMARATE [Suspect]
     Dosage: UKN, BID,FROM MORE THAN 6 MONTHS AT A DOSE OF ONE INHALATION BID (MORNING AND NIGHT)
  2. OMEPRAZOLE [Concomitant]
     Indication: GASTRITIS
     Dosage: 1 DF, UNK, ONE TABLET DAILY IN FASTING, ORAL, STARTED MORE THAN 8 MONTHS
     Route: 048
  3. BECLOMETHASONE DIPROPIONATE [Suspect]
     Dosage: UNK UKN, BID,  FROM MORE THAN 6 MONTHS AT A DOSE OF ONE INHALATION BID (MORNING AND NIGHT).
  4. BECLOMETHASONE DIPROPIONATE [Suspect]
     Dosage: 1 DF, UNK, TOOK ONE CAPSULE OF MIFLASONE 400 MCG
     Dates: start: 20111006

REACTIONS (2)
  - DYSPNOEA [None]
  - VARICOSE VEIN [None]
